FAERS Safety Report 7904032-8 (Version None)
Quarter: 2011Q4

REPORT INFORMATION
  Report Type: 
  Country: None (occurrence: None)
  Receive Date: 20111109
  Receipt Date: 20111014
  Transmission Date: 20120403
  Serious: Yes (Other)
  Sender: FDA-Public Use
  Company Number: PHHY2011ES95533

PATIENT
  Age: 80 Year
  Sex: Female

DRUGS (4)
  1. RIVASTIGMINE TARTRATE [Suspect]
     Indication: DEMENTIA
     Dosage: 1.5 MG, QD
     Route: 048
     Dates: start: 20090101, end: 20110212
  2. SINEMET [Suspect]
     Indication: PARKINSON'S DISEASE
     Route: 048
     Dates: start: 20060101
  3. NIMODIPINE [Concomitant]
     Indication: CEREBRAL SMALL VESSEL ISCHAEMIC DISEASE
     Route: 048
     Dates: start: 20060101
  4. OLMESARTAN MEDOXOMIL [Concomitant]
     Indication: HYPERTENSION
     Dosage: 10 MG, UNK
     Route: 048
     Dates: start: 20060101

REACTIONS (2)
  - HEART RATE ABNORMAL [None]
  - SYNCOPE [None]
